FAERS Safety Report 18575602 (Version 2)
Quarter: 2021Q4

REPORT INFORMATION
  Report Type: Spontaneous
  Country: US (occurrence: US)
  Receive Date: 20201203
  Receipt Date: 20211201
  Transmission Date: 20220303
  Serious: Yes (Other)
  Sender: FDA-Public Use
  Company Number: US-BAYER-2020-261752

PATIENT
  Age: 36 Year
  Sex: Female
  Weight: 56.689 kg

DRUGS (2)
  1. KYLEENA [Suspect]
     Active Substance: LEVONORGESTREL
     Indication: Contraception
     Dosage: 17.5?G/DAY
     Route: 015
     Dates: start: 20191009, end: 20201024
  2. VITAMINS NOS [Concomitant]
     Active Substance: VITAMINS

REACTIONS (9)
  - Pregnancy with contraceptive device [None]
  - Genital haemorrhage [None]
  - Drug ineffective [None]
  - Nausea [None]
  - Premature rupture of membranes [None]
  - Postpartum haemorrhage [None]
  - Vaginal haemorrhage [None]
  - Vaginal discharge [None]
  - Muscle spasms [None]

NARRATIVE: CASE EVENT DATE: 20200101
